FAERS Safety Report 19659380 (Version 4)
Quarter: 2021Q3

REPORT INFORMATION
  Report Type: Spontaneous
  Country: CA (occurrence: CA)
  Receive Date: 20210805
  Receipt Date: 20210922
  Transmission Date: 20211014
  Serious: Yes (Other)
  Sender: FDA-Public Use
  Company Number: CA-CELLTRION INC.-2021CA000552

PATIENT

DRUGS (4)
  1. INFLECTRA [Suspect]
     Active Substance: INFLIXIMAB-DYYB
     Indication: COLITIS ULCERATIVE
     Dosage: 800 MG EVERY 6 WEEKS
     Route: 042
     Dates: start: 20210202
  2. INFLECTRA [Suspect]
     Active Substance: INFLIXIMAB-DYYB
     Dosage: 800 MG EVERY 6 WEEKS
     Route: 042
     Dates: start: 20210318
  3. INFLECTRA [Suspect]
     Active Substance: INFLIXIMAB-DYYB
     Dosage: 800 MG EVERY 6 WEEKS
     Route: 042
     Dates: start: 20210720, end: 2021
  4. INFLECTRA [Suspect]
     Active Substance: INFLIXIMAB-DYYB
     Dosage: 800 MG EVERY 6 WEEKS
     Route: 042
     Dates: start: 20210427

REACTIONS (11)
  - Condition aggravated [Unknown]
  - Arthralgia [Unknown]
  - Myalgia [Unknown]
  - Pain [Unknown]
  - Intentional product use issue [Unknown]
  - Drug ineffective [Unknown]
  - Fatigue [Unknown]
  - Haematochezia [Unknown]
  - Alopecia [Unknown]
  - Off label use [Unknown]
  - Off label use [Unknown]

NARRATIVE: CASE EVENT DATE: 2021
